FAERS Safety Report 11959207 (Version 4)
Quarter: 2016Q4

REPORT INFORMATION
  Report Type: Report from Study
  Country: SE (occurrence: SE)
  Receive Date: 20160126
  Receipt Date: 20161118
  Transmission Date: 20170206
  Serious: Yes (Death)
  Sender: FDA-Public Use
  Company Number: PHHO2016SE001291

PATIENT
  Age: 75 Year
  Sex: Male
  Weight: 90 kg

DRUGS (2)
  1. AMN107 [Suspect]
     Active Substance: NILOTINIB
     Indication: CHRONIC MYELOID LEUKAEMIA
     Dosage: 800 MG, UNK
     Route: 048
     Dates: start: 20080922, end: 20150310
  2. AMN107 [Suspect]
     Active Substance: NILOTINIB
     Dosage: 600 MG, UNK
     Route: 048
     Dates: start: 20150311, end: 20160106

REACTIONS (1)
  - Death [Fatal]

NARRATIVE: CASE EVENT DATE: 20160107
